FAERS Safety Report 6123014-2 (Version None)
Quarter: 2009Q1

REPORT INFORMATION
  Report Type: 
  Country: None (occurrence: None)
  Receive Date: 20090318
  Receipt Date: 20090310
  Transmission Date: 20090719
  Serious: Yes (Other)
  Sender: FDA-Public Use
  Company Number: JP-MERCK-0903USA00504

PATIENT
  Age: 69 Year
  Sex: Male
  Weight: 63 kg

DRUGS (5)
  1. COZAAR [Suspect]
     Route: 048
     Dates: start: 20081201
  2. DEPAS [Concomitant]
     Route: 048
  3. MENITAZINE [Concomitant]
     Route: 048
  4. SAYMOTIN S [Concomitant]
     Route: 048
  5. ALLELOCK [Concomitant]
     Route: 048

REACTIONS (1)
  - RHABDOMYOLYSIS [None]
